FAERS Safety Report 5799523-2 (Version None)
Quarter: 2008Q3

REPORT INFORMATION
  Report Type: 
  Country: None (occurrence: None)
  Receive Date: 20080701
  Receipt Date: 20080701
  Transmission Date: 20090109
  Serious: Yes (Hospitalization)
  Sender: FDA-Public Use
  Company Number: None

PATIENT
  Age: 45 Year
  Sex: Male
  Weight: 90.2658 kg

DRUGS (1)
  1. VIVITROL [Suspect]
     Indication: ALCOHOLISM
     Dosage: 380MG EVERY 4 WEEKS IM
     Route: 030
     Dates: start: 20080610, end: 20080630

REACTIONS (3)
  - DEEP VEIN THROMBOSIS [None]
  - PNEUMONIA [None]
  - PULMONARY EMBOLISM [None]
